FAERS Safety Report 4960201-0 (Version None)
Quarter: 2006Q1

REPORT INFORMATION
  Report Type: 
  Country: None (occurrence: None)
  Receive Date: 20060328
  Receipt Date: 20060313
  Transmission Date: 20060701
  Serious: Yes (Hospitalization, Other)
  Sender: FDA-Public Use
  Company Number: 2006034843

PATIENT
  Age: 44 Year
  Sex: Female
  Weight: 47.6277 kg

DRUGS (4)
  1. DETROL LA [Suspect]
     Indication: HYPERTONIC BLADDER
     Dosage: 4 MG (4 MG, 1 IN 1 D), ORAL
     Route: 048
     Dates: start: 20050801
  2. ANTIBIOTICS (ANTIBIOTICS) [Concomitant]
  3. CLONAZEPAM [Concomitant]
  4. LAMICTAL [Concomitant]

REACTIONS (17)
  - ABDOMINAL PAIN UPPER [None]
  - ADHESION [None]
  - BLOOD URINE PRESENT [None]
  - COLONIC POLYP [None]
  - DRUG INEFFECTIVE [None]
  - DYSURIA [None]
  - HYSTERECTOMY [None]
  - INSOMNIA [None]
  - INTESTINAL CYST [None]
  - INTESTINAL STRANGULATION [None]
  - POLYDIPSIA [None]
  - POST PROCEDURAL COMPLICATION [None]
  - PRECANCEROUS CELLS PRESENT [None]
  - PROTEIN URINE PRESENT [None]
  - URINARY BLADDER POLYP [None]
  - URINARY TRACT OBSTRUCTION [None]
  - VOMITING [None]
